FAERS Safety Report 10108807 (Version 2)
Quarter: 2014Q2

REPORT INFORMATION
  Report Type: Spontaneous
  Country: IT (occurrence: IT)
  Receive Date: 20140425
  Receipt Date: 20140425
  Transmission Date: 20141212
  Serious: Yes (Other)
  Sender: FDA-Public Use
  Company Number: IT-RANBAXY-2014RR-80479

PATIENT
  Age: 30 Year
  Sex: Female

DRUGS (2)
  1. AMOXICILLIN [Suspect]
     Indication: TONSILLITIS
     Dosage: 2 G, DAILY
     Route: 048
     Dates: start: 20140112, end: 20140116
  2. YASMINELLE [Concomitant]
     Indication: CONTRACEPTION
     Dosage: 1 DF
     Route: 048
     Dates: start: 20130601, end: 20140116

REACTIONS (2)
  - Pruritus [Recovered/Resolved]
  - Urticaria [Recovered/Resolved]
